FAERS Safety Report 12493521 (Version 2)
Quarter: 2016Q3

REPORT INFORMATION
  Report Type: Spontaneous
  Country: GB (occurrence: GB)
  Receive Date: 20160623
  Receipt Date: 20160705
  Transmission Date: 20161109
  Serious: Yes (Other)
  Sender: FDA-Public Use
  Company Number: GB-WATSON-2016-12865

PATIENT
  Age: 47 Year
  Sex: Female
  Weight: 63.5 kg

DRUGS (1)
  1. RAMIPRIL (UNKNOWN) [Suspect]
     Active Substance: RAMIPRIL
     Indication: PRODUCT USED FOR UNKNOWN INDICATION
     Dosage: 5 MG, DAILY
     Route: 065
     Dates: start: 20140916, end: 20160331

REACTIONS (53)
  - Pruritus [Recovered/Resolved]
  - Back pain [Recovered/Resolved]
  - Dizziness [Recovered/Resolved]
  - Cough [Not Recovered/Not Resolved]
  - Restlessness [Recovered/Resolved]
  - Dizziness [Recovered/Resolved]
  - Throat irritation [Recovered/Resolved]
  - Disturbance in attention [Recovered/Resolved]
  - Periodontitis [Recovered/Resolved]
  - Sleep disorder [Recovered/Resolved]
  - Depression [Recovered/Resolved]
  - Gingival recession [Recovered/Resolved]
  - Vision blurred [Recovered/Resolved]
  - Heart rate increased [Recovered/Resolved]
  - Heart rate irregular [Recovered/Resolved]
  - Decreased appetite [Recovered/Resolved]
  - Tremor [Recovered/Resolved]
  - Red blood cell count decreased [Recovered/Resolved]
  - Chills [Recovered/Resolved]
  - Mental impairment [Recovered/Resolved]
  - Skin exfoliation [Recovered/Resolved]
  - Abnormal loss of weight [Recovered/Resolved]
  - Dyspnoea [Recovered/Resolved]
  - Slow response to stimuli [Recovered/Resolved]
  - Nervousness [Recovered/Resolved]
  - Eye swelling [Recovered/Resolved]
  - Night sweats [Recovered/Resolved]
  - Fatigue [Recovered/Resolved]
  - Hyperhidrosis [Recovered/Resolved]
  - Tinnitus [Recovered/Resolved]
  - Influenza like illness [Recovered/Resolved]
  - Arthralgia [Recovered/Resolved]
  - Palpitations [Recovered/Resolved]
  - Alopecia [Recovered/Resolved]
  - Gingival bleeding [Recovered/Resolved]
  - Chest pain [Recovered/Resolved]
  - Confusional state [Recovered/Resolved]
  - Parosmia [Recovered/Resolved]
  - Nocturia [Recovered/Resolved]
  - Hot flush [Recovered/Resolved]
  - Eczema [Recovered/Resolved]
  - Chest discomfort [Recovered/Resolved]
  - Asthenia [Recovered/Resolved]
  - Dysgeusia [Recovered/Resolved]
  - Arrhythmia [Recovered/Resolved]
  - Rash papular [Recovered/Resolved]
  - Lacrimation increased [Recovered/Resolved]
  - Pain in extremity [Recovered/Resolved]
  - Sinus disorder [Recovered/Resolved]
  - Pain in jaw [Recovered/Resolved]
  - Swelling face [Recovered/Resolved]
  - Balance disorder [Recovered/Resolved]
  - Insomnia [Recovered/Resolved]

NARRATIVE: CASE EVENT DATE: 201409
